FAERS Safety Report 9174319 (Version 1)
Quarter: 2013Q1

REPORT INFORMATION
  Report Type: Spontaneous
  Country: GB (occurrence: GB)
  Receive Date: 20130320
  Receipt Date: 20130320
  Transmission Date: 20140127
  Serious: Yes (Hospitalization)
  Sender: FDA-Public Use
  Company Number: GB-BANPHARM-20130951

PATIENT
  Age: 30 Year
  Sex: Male

DRUGS (1)
  1. IBUPROFEN UNKNOWN PRODUCT [Suspect]
     Indication: BACK PAIN
     Dosage: 1200 MG QID UNTIL 12FEB2013, THEN 400 MG,
     Route: 048
     Dates: start: 20121119, end: 20130215

REACTIONS (1)
  - Gastric ulcer haemorrhage [Recovering/Resolving]
